FAERS Safety Report 18557191 (Version 1)
Quarter: 2020Q4

REPORT INFORMATION
  Report Type: Not Available
  Country: None (occurrence: None)
  Receive Date: 20201129
  Receipt Date: 20201129
  Transmission Date: 20210114
  Serious: No
  Sender: FDA-Public Use
  Company Number: US-AKORN PHARMACEUTICALS-2020AKN01129

PATIENT
  Age: 18 Year
  Sex: Female

DRUGS (1)
  1. MYORISAN [Suspect]
     Active Substance: ISOTRETINOIN

REACTIONS (8)
  - Scar [Not Recovered/Not Resolved]
  - Menstruation irregular [Unknown]
  - Lip dry [None]
  - Cheilitis [Unknown]
  - Pain [Recovered/Resolved]
  - Acne [Recovered/Resolved]
  - Back pain [Recovered/Resolved]
  - Dry skin [None]
